FAERS Safety Report 20547433 (Version 1)
Quarter: 2022Q1

REPORT INFORMATION
  Report Type: Spontaneous
  Country: US (occurrence: US)
  Receive Date: 20220303
  Receipt Date: 20220303
  Transmission Date: 20220423
  Serious: Yes (Other)
  Sender: FDA-Public Use
  Company Number: US-JNJFOC-20220254027

PATIENT
  Age: 73 Year
  Sex: Female
  Weight: 81.720 kg

DRUGS (6)
  1. XARELTO [Suspect]
     Active Substance: RIVAROXABAN
     Indication: Pulmonary embolism
     Route: 048
     Dates: start: 2018
  2. XARELTO [Suspect]
     Active Substance: RIVAROXABAN
     Indication: Pulmonary thrombosis
     Route: 048
  3. XARELTO [Suspect]
     Active Substance: RIVAROXABAN
     Dosage: IN THE EVENING
     Route: 048
     Dates: end: 20220113
  4. COVID-19 VACCINE [Concomitant]
     Dates: start: 202006
  5. COVID-19 VACCINE [Concomitant]
     Dates: start: 202007
  6. ASPIRIN [Concomitant]
     Active Substance: ASPIRIN
     Dosage: FOR 30 YEARS

REACTIONS (6)
  - Diabetes mellitus [Unknown]
  - Weight increased [Unknown]
  - Lung disorder [Unknown]
  - Intentional product use issue [Unknown]
  - Off label use [Unknown]
  - Product dose omission issue [Unknown]

NARRATIVE: CASE EVENT DATE: 20220101
